FAERS Safety Report 25601944 (Version 1)
Quarter: 2025Q3

REPORT INFORMATION
  Report Type: Spontaneous
  Country: US (occurrence: US)
  Receive Date: 20250724
  Receipt Date: 20250724
  Transmission Date: 20251021
  Serious: No
  Sender: PFIZER
  Company Number: US-PFIZER INC-202500148620

PATIENT
  Sex: Female

DRUGS (6)
  1. DOXYCYCLINE HYCLATE [Suspect]
     Active Substance: DOXYCYCLINE HYCLATE
     Indication: Pustule
  2. DOXYCYCLINE HYCLATE [Suspect]
     Active Substance: DOXYCYCLINE HYCLATE
     Indication: Skin weeping
  3. DOXYCYCLINE HYCLATE [Suspect]
     Active Substance: DOXYCYCLINE HYCLATE
     Indication: Antibiotic therapy
  4. KEFLEX [Suspect]
     Active Substance: CEPHALEXIN
     Indication: Pustule
  5. KEFLEX [Suspect]
     Active Substance: CEPHALEXIN
     Indication: Skin weeping
  6. KEFLEX [Suspect]
     Active Substance: CEPHALEXIN
     Indication: Antibiotic therapy

REACTIONS (1)
  - Drug ineffective [Unknown]
